FAERS Safety Report 16146104 (Version 1)
Quarter: 2019Q2

REPORT INFORMATION
  Report Type: Spontaneous
  Country: CN (occurrence: CN)
  Receive Date: 20190402
  Receipt Date: 20190402
  Transmission Date: 20190711
  Serious: Yes (Hospitalization)
  Sender: FDA-Public Use
  Company Number: CN-SA-2019SA085231

PATIENT
  Age: 53 Year
  Sex: Female

DRUGS (4)
  1. PREDNISONE ACETATE [Concomitant]
     Active Substance: PREDNISONE ACETATE
     Indication: SJOGREN^S SYNDROME
     Dosage: 30 MG, QD
     Route: 031
     Dates: start: 20181101, end: 20181217
  2. CALCIUM CARBONATE. [Concomitant]
     Active Substance: CALCIUM CARBONATE
     Indication: MINERAL SUPPLEMENTATION
     Dosage: 0.3 G, QD
     Route: 048
     Dates: start: 20181101, end: 20181217
  3. HYDROXYCHLOROQUINE SULFATE. [Suspect]
     Active Substance: HYDROXYCHLOROQUINE SULFATE
     Indication: SJOGREN^S SYNDROME
     Dosage: 0.2 G, QD
     Route: 048
     Dates: start: 20181101, end: 20181217
  4. LEFLUNOMIDE. [Suspect]
     Active Substance: LEFLUNOMIDE
     Indication: SJOGREN^S SYNDROME
     Dosage: 20 MG, QD
     Route: 048
     Dates: start: 20181101, end: 20181217

REACTIONS (1)
  - Drug eruption [Recovering/Resolving]

NARRATIVE: CASE EVENT DATE: 20181217
